FAERS Safety Report 23447873 (Version 3)
Quarter: 2024Q2

REPORT INFORMATION
  Report Type: Report from Study
  Country: CA (occurrence: CA)
  Receive Date: 20240126
  Receipt Date: 20240405
  Transmission Date: 20240716
  Serious: Yes (Hospitalization, Other)
  Sender: FDA-Public Use
  Company Number: CA-HLS-202400061

PATIENT
  Age: 58 Year
  Sex: Female

DRUGS (7)
  1. CLOZARIL [Suspect]
     Active Substance: CLOZAPINE
     Indication: Parkinsonism
     Dosage: STARTED AT 25 MG INCREASED TO 200 MG ON 23 NOV 2023. CLOZAPINE?WAS?TAPERED?DOWN?ON?04-DEC-2023
     Route: 048
     Dates: end: 20240109
  2. CLOZARIL [Suspect]
     Active Substance: CLOZAPINE
     Indication: Schizoaffective disorder
     Dosage: STARTED AT 25 MG INCREASED TO 200 MG ON 23 NOV 2023. CLOZAPINE?WAS?TAPERED?DOWN?ON?04-DEC-2023
     Route: 048
     Dates: end: 20240109
  3. SYMBICORT [Concomitant]
     Active Substance: BUDESONIDE\FORMOTEROL FUMARATE DIHYDRATE
     Indication: Asthma
     Dosage: INHALATION.
     Route: 065
  4. NEURONTIN [Concomitant]
     Active Substance: GABAPENTIN
     Indication: Anxiety
     Route: 048
  5. SYMMETREL [Concomitant]
     Active Substance: AMANTADINE HYDROCHLORIDE
     Indication: Extrapyramidal disorder
     Route: 048
  6. DEPAKOTE [Concomitant]
     Active Substance: DIVALPROEX SODIUM
     Indication: Bipolar disorder
     Dosage: 250/150
     Route: 048
  7. PALIPERIDONE PALMITATE [Concomitant]
     Active Substance: PALIPERIDONE PALMITATE
     Indication: Psychiatric symptom
     Route: 065

REACTIONS (5)
  - Cardiovascular disorder [Unknown]
  - Parkinsonism [Recovering/Resolving]
  - Pericarditis [Recovered/Resolved]
  - Sinus tachycardia [Recovered/Resolved]
  - Upper respiratory tract infection [Unknown]

NARRATIVE: CASE EVENT DATE: 20231111
